FAERS Safety Report 5810847-2 (Version None)
Quarter: 2008Q3

REPORT INFORMATION
  Report Type: 
  Country: None (occurrence: None)
  Receive Date: 20080710
  Receipt Date: 20080618
  Transmission Date: 20090109
  Serious: Yes (Hospitalization)
  Sender: FDA-Public Use
  Company Number: 1-16295918

PATIENT
  Sex: Female
  Weight: 74.3899 kg

DRUGS (3)
  1. FENTANYL TRANSDERMAL SYSTEM [Suspect]
     Indication: PAIN
     Dosage: ONCE PATCH EVERY 72 HR, TRANASDERMAL
     Route: 062
     Dates: start: 20080101, end: 20080101
  2. CLONAZEPAM [Concomitant]
  3. UNSPECIFIED PAIN MEDICATION [Concomitant]

REACTIONS (4)
  - DYSPNOEA [None]
  - LOSS OF CONSCIOUSNESS [None]
  - OVERDOSE [None]
  - VOMITING [None]
